FAERS Safety Report 15754463 (Version 3)
Quarter: 2019Q1

REPORT INFORMATION
  Report Type: Spontaneous
  Country: JP (occurrence: JP)
  Receive Date: 20181224
  Receipt Date: 20190317
  Transmission Date: 20190417
  Serious: Yes (Death, Hospitalization, Other)
  Sender: FDA-Public Use
  Company Number: JP-AMGEN-JPNSP2018183644

PATIENT
  Age: 77 Year
  Sex: Male

DRUGS (5)
  1. DALACIN C FOSFATO [Concomitant]
     Active Substance: CLINDAMYCIN PHOSPHATE
     Dosage: UNK
     Route: 065
  2. PARSABIV [Suspect]
     Active Substance: ETELCALCETIDE HYDROCHLORIDE
     Indication: HYPERPARATHYROIDISM SECONDARY
     Dosage: UNK
     Route: 042
  3. PREDONINE-1 [Concomitant]
     Active Substance: PREDNISOLONE ACETATE
     Dosage: UNK
     Route: 065
  4. AMIODARONE HYDROCHLORIDE TE [Concomitant]
     Dosage: UNK
     Route: 065
  5. MINOCYCLINE HYDROCHLORIDE NICHIIKO [Concomitant]
     Dosage: UNK
     Route: 065

REACTIONS (4)
  - Adrenal insufficiency [Not Recovered/Not Resolved]
  - Hypothyroidism [Not Recovered/Not Resolved]
  - Cardiac failure [Fatal]
  - Crowned dens syndrome [Not Recovered/Not Resolved]

NARRATIVE: CASE EVENT DATE: 201812
